FAERS Safety Report 7970822-9 (Version None)
Quarter: 2011Q4

REPORT INFORMATION
  Report Type: 
  Country: None (occurrence: None)
  Receive Date: 20111212
  Receipt Date: 20111202
  Transmission Date: 20120403
  Serious: Yes (Hospitalization)
  Sender: FDA-Public Use
  Company Number: US-GLAXOSMITHKLINE-A0879537A

PATIENT
  Age: 32 Year
  Sex: Female

DRUGS (1)
  1. AVANDIA [Suspect]
     Indication: MENSTRUATION IRREGULAR
     Dosage: 8MG PER DAY
     Route: 048
     Dates: start: 20000701, end: 20010501

REACTIONS (3)
  - OEDEMA PERIPHERAL [None]
  - THROMBOSIS [None]
  - BENIGN HYDATIDIFORM MOLE [None]
